FAERS Safety Report 23972769 (Version 3)
Quarter: 2024Q3

REPORT INFORMATION
  Report Type: Spontaneous
  Country: DE (occurrence: DE)
  Receive Date: 20240613
  Receipt Date: 20240808
  Transmission Date: 20241016
  Serious: Yes (Hospitalization, Other)
  Sender: GLAXOSMITHKLINE
  Company Number: DE-GLAXOSMITHKLINE-DE2024EME070533

PATIENT

DRUGS (2)
  1. NUCALA [Suspect]
     Active Substance: MEPOLIZUMAB
     Indication: Chronic rhinosinusitis with nasal polyps
     Dosage: 100 MG, Q4W
     Dates: start: 20240228
  2. NUCALA [Suspect]
     Active Substance: MEPOLIZUMAB
     Indication: Asthma

REACTIONS (10)
  - Surgery [Unknown]
  - Paranasal cyst [Recovering/Resolving]
  - Eye swelling [Recovering/Resolving]
  - Nasal congestion [Recovering/Resolving]
  - Fatigue [Recovering/Resolving]
  - Initial insomnia [Unknown]
  - Blood immunoglobulin E increased [Unknown]
  - Eosinophil count increased [Recovered/Resolved]
  - Condition aggravated [Unknown]
  - Diplopia [Unknown]

NARRATIVE: CASE EVENT DATE: 20240521
